FAERS Safety Report 4420283-1 (Version None)
Quarter: 2004Q2

REPORT INFORMATION
  Report Type: 
  Country: None (occurrence: None)
  Receive Date: 20040622
  Receipt Date: 20040204
  Transmission Date: 20050107
  Serious: Yes (Hospitalization)
  Sender: FDA-Public Use
  Company Number: US-JNJFOC-20040201177

PATIENT
  Age: 33 Year
  Sex: Male
  Weight: 124.7392 kg

DRUGS (7)
  1. HALDOL [Suspect]
     Indication: DEPRESSION
     Dosage: ORAL
     Route: 048
     Dates: start: 19890101, end: 19910101
  2. HALDOL [Suspect]
     Indication: DEPRESSION
     Dosage: ORAL
     Route: 048
     Dates: start: 19970101, end: 19970101
  3. HALDOL [Suspect]
     Indication: DEPRESSION
     Dates: start: 19890101, end: 19910101
  4. HALDOL [Suspect]
     Indication: DEPRESSION
     Dates: start: 19970101, end: 19970101
  5. LITHIUM CARBONATE [Concomitant]
  6. BENADRYL () DIPHENYDRAMINE HYDROCHLORIDE [Concomitant]
  7. COGENTIN [Concomitant]

REACTIONS (3)
  - DYSKINESIA [None]
  - HALLUCINATION [None]
  - HEART RATE IRREGULAR [None]
